FAERS Safety Report 13914612 (Version 3)
Quarter: 2018Q1

REPORT INFORMATION
  Report Type: Spontaneous
  Country: JP (occurrence: JP)
  Receive Date: 20170828
  Receipt Date: 20180308
  Transmission Date: 20180508
  Serious: Yes (Hospitalization, Other)
  Sender: FDA-Public Use
  Company Number: JP-AMGEN-JPNSP2017131012

PATIENT
  Age: 8 Decade
  Sex: Male
  Weight: 58 kg

DRUGS (9)
  1. DOCETAXEL. [Concomitant]
     Active Substance: DOCETAXEL
     Indication: HORMONE-REFRACTORY PROSTATE CANCER
     Dosage: UNK
     Route: 041
  2. DECADRON [Concomitant]
     Active Substance: DEXAMETHASONE
     Indication: HORMONE-REFRACTORY PROSTATE CANCER
     Dosage: 6.6 MG, 1X/3WEEKS
     Route: 042
     Dates: start: 20170704
  3. G-LASTA [Suspect]
     Active Substance: PEGFILGRASTIM
     Indication: COLONY STIMULATING FACTOR PROPHYLAXIS
     Dosage: 3.6 MG, SINGLE
     Route: 058
     Dates: start: 20170727, end: 20170727
  4. DOCETAXEL. [Concomitant]
     Active Substance: DOCETAXEL
     Dosage: 70 MG/M2, 1X/3WEEKS
     Route: 041
     Dates: start: 20170704
  5. LEUPRORELIN ACETATE [Concomitant]
     Active Substance: LEUPROLIDE ACETATE
     Indication: HORMONE-REFRACTORY PROSTATE CANCER
     Dosage: 3.75 MG, 1X/MONTH
     Route: 058
     Dates: start: 20121106
  6. DOCETAXEL. [Concomitant]
     Active Substance: DOCETAXEL
     Dosage: 70 MG/M2, 1X/3WEEKS
     Route: 041
     Dates: start: 20170725
  7. ZOLEDRONIC ACID [Concomitant]
     Active Substance: ZOLEDRONIC ACID
     Indication: HORMONE-REFRACTORY PROSTATE CANCER
     Dosage: 3 MG, 1X/MONTH
     Route: 041
     Dates: start: 20130108
  8. LANSOPRAZOLE. [Concomitant]
     Active Substance: LANSOPRAZOLE
     Indication: GASTRIC ULCER
     Dosage: 15 MG, QD
     Route: 048
     Dates: start: 20140701
  9. PREDONINE [Concomitant]
     Active Substance: PREDNISOLONE
     Indication: HORMONE-REFRACTORY PROSTATE CANCER
     Dosage: 5 MG, QD
     Route: 048
     Dates: start: 20150929

REACTIONS (1)
  - Aortitis [Recovered/Resolved]

NARRATIVE: CASE EVENT DATE: 20170801
